FAERS Safety Report 20171544 (Version 1)
Quarter: 2021Q4

REPORT INFORMATION
  Report Type: Spontaneous
  Country: CN (occurrence: CN)
  Receive Date: 20211210
  Receipt Date: 20211210
  Transmission Date: 20220303
  Serious: Yes (Life-Threatening, Hospitalization, Disabling)
  Sender: FDA-Public Use
  Company Number: CN-PFIZER INC-202101706717

PATIENT
  Age: 34 Year
  Sex: Male
  Weight: 73 kg

DRUGS (45)
  1. CYTARABINE [Suspect]
     Active Substance: CYTARABINE
     Indication: Acute lymphocytic leukaemia
     Dosage: 3.8 G, 2X/DAY
     Route: 041
     Dates: start: 20211102, end: 20211103
  2. CYTARABINE [Suspect]
     Active Substance: CYTARABINE
     Indication: Chemotherapy
  3. CYTARABINE [Suspect]
     Active Substance: CYTARABINE
     Indication: Neoplasm
  4. CYTARABINE [Suspect]
     Active Substance: CYTARABINE
     Indication: Myocardial necrosis marker increased
  5. CYTARABINE [Suspect]
     Active Substance: CYTARABINE
     Indication: Hepatic function abnormal
  6. CYTARABINE [Suspect]
     Active Substance: CYTARABINE
     Indication: Hepatitis B
  7. CYTARABINE [Suspect]
     Active Substance: CYTARABINE
     Indication: Hepatic steatosis
  8. CYTARABINE [Suspect]
     Active Substance: CYTARABINE
     Indication: Hypoproteinaemia
  9. CYTARABINE [Suspect]
     Active Substance: CYTARABINE
     Indication: Myelosuppression
  10. METHOTREXATE [Suspect]
     Active Substance: METHOTREXATE
     Indication: Acute lymphocytic leukaemia
     Dosage: 5 G, 1X/DAY
     Route: 041
     Dates: start: 20211029, end: 20211030
  11. METHOTREXATE [Suspect]
     Active Substance: METHOTREXATE
     Indication: Chemotherapy
  12. METHOTREXATE [Suspect]
     Active Substance: METHOTREXATE
     Indication: Neoplasm
  13. METHOTREXATE [Suspect]
     Active Substance: METHOTREXATE
     Indication: Myocardial necrosis marker increased
  14. METHOTREXATE [Suspect]
     Active Substance: METHOTREXATE
     Indication: Hepatic function abnormal
  15. METHOTREXATE [Suspect]
     Active Substance: METHOTREXATE
     Indication: Hepatitis B
  16. METHOTREXATE [Suspect]
     Active Substance: METHOTREXATE
     Indication: Hepatic steatosis
  17. METHOTREXATE [Suspect]
     Active Substance: METHOTREXATE
     Indication: Hypoproteinaemia
  18. METHOTREXATE [Suspect]
     Active Substance: METHOTREXATE
     Indication: Myelosuppression
  19. CYCLOPHOSPHAMIDE [Suspect]
     Active Substance: CYCLOPHOSPHAMIDE
     Indication: Acute lymphocytic leukaemia
     Dosage: 0.38 G, 2X/DAY
     Route: 041
     Dates: start: 20211030, end: 20211102
  20. CYCLOPHOSPHAMIDE [Suspect]
     Active Substance: CYCLOPHOSPHAMIDE
     Indication: Chemotherapy
  21. CYCLOPHOSPHAMIDE [Suspect]
     Active Substance: CYCLOPHOSPHAMIDE
     Indication: Neoplasm
  22. CYCLOPHOSPHAMIDE [Suspect]
     Active Substance: CYCLOPHOSPHAMIDE
     Indication: Myocardial necrosis marker increased
  23. CYCLOPHOSPHAMIDE [Suspect]
     Active Substance: CYCLOPHOSPHAMIDE
     Indication: Hepatic function abnormal
  24. CYCLOPHOSPHAMIDE [Suspect]
     Active Substance: CYCLOPHOSPHAMIDE
     Indication: Hepatitis B
  25. CYCLOPHOSPHAMIDE [Suspect]
     Active Substance: CYCLOPHOSPHAMIDE
     Indication: Hepatic steatosis
  26. CYCLOPHOSPHAMIDE [Suspect]
     Active Substance: CYCLOPHOSPHAMIDE
     Indication: Hypoproteinaemia
  27. CYCLOPHOSPHAMIDE [Suspect]
     Active Substance: CYCLOPHOSPHAMIDE
     Indication: Myelosuppression
  28. PEGASPARGASE [Suspect]
     Active Substance: PEGASPARGASE
     Indication: Acute lymphocytic leukaemia
     Dosage: 3750 IU, 1X/DAY
     Route: 030
     Dates: start: 20211103, end: 20211104
  29. PEGASPARGASE [Suspect]
     Active Substance: PEGASPARGASE
     Indication: Chemotherapy
  30. PEGASPARGASE [Suspect]
     Active Substance: PEGASPARGASE
     Indication: Neoplasm
  31. PEGASPARGASE [Suspect]
     Active Substance: PEGASPARGASE
     Indication: Myocardial necrosis marker increased
  32. PEGASPARGASE [Suspect]
     Active Substance: PEGASPARGASE
     Indication: Hepatic function abnormal
  33. PEGASPARGASE [Suspect]
     Active Substance: PEGASPARGASE
     Indication: Hepatitis B
  34. PEGASPARGASE [Suspect]
     Active Substance: PEGASPARGASE
     Indication: Hepatic steatosis
  35. PEGASPARGASE [Suspect]
     Active Substance: PEGASPARGASE
     Indication: Hypoproteinaemia
  36. PEGASPARGASE [Suspect]
     Active Substance: PEGASPARGASE
     Indication: Myelosuppression
  37. SODIUM CHLORIDE [Concomitant]
     Active Substance: SODIUM CHLORIDE
     Indication: Acute lymphocytic leukaemia
     Dosage: 500 ML, 1X/DAY
     Route: 041
     Dates: start: 20211029, end: 20211030
  38. SODIUM CHLORIDE [Concomitant]
     Active Substance: SODIUM CHLORIDE
     Indication: Chemotherapy
     Dosage: 500 ML, 2X/DAY
     Route: 041
     Dates: start: 20211030, end: 20211102
  39. SODIUM CHLORIDE [Concomitant]
     Active Substance: SODIUM CHLORIDE
     Indication: Neoplasm
     Dosage: 500 ML, 2X/DAY
     Route: 041
     Dates: start: 20211102, end: 20211103
  40. SODIUM CHLORIDE [Concomitant]
     Active Substance: SODIUM CHLORIDE
     Indication: Myocardial necrosis marker increased
  41. SODIUM CHLORIDE [Concomitant]
     Active Substance: SODIUM CHLORIDE
     Indication: Hepatic function abnormal
  42. SODIUM CHLORIDE [Concomitant]
     Active Substance: SODIUM CHLORIDE
     Indication: Hepatitis B
  43. SODIUM CHLORIDE [Concomitant]
     Active Substance: SODIUM CHLORIDE
     Indication: Hepatic steatosis
  44. SODIUM CHLORIDE [Concomitant]
     Active Substance: SODIUM CHLORIDE
     Indication: Hypoproteinaemia
  45. SODIUM CHLORIDE [Concomitant]
     Active Substance: SODIUM CHLORIDE
     Indication: Myelosuppression

REACTIONS (3)
  - Myelosuppression [Recovered/Resolved]
  - Septic shock [Recovered/Resolved]
  - Amylase increased [Recovered/Resolved]

NARRATIVE: CASE EVENT DATE: 20211108
